FAERS Safety Report 5591778-2 (Version None)
Quarter: 2008Q1

REPORT INFORMATION
  Report Type: 
  Country: None (occurrence: None)
  Receive Date: 20080115
  Receipt Date: 20080103
  Transmission Date: 20080703
  Serious: Yes (Other)
  Sender: FDA-Public Use
  Company Number: B0360425A

PATIENT
  Sex: Male

DRUGS (5)
  1. PAROXETINE HYDROCHLORIDE [Suspect]
     Route: 065
     Dates: start: 19941116
  2. STELAZINE [Concomitant]
     Dates: start: 19940101
  3. ZIMOVANE [Concomitant]
  4. VIAGRA [Concomitant]
  5. PROTHIADEN [Concomitant]
     Route: 065
     Dates: start: 19930602

REACTIONS (18)
  - AGGRESSION [None]
  - AGITATION [None]
  - ANXIETY [None]
  - CONFUSIONAL STATE [None]
  - DEPRESSION [None]
  - DISTURBANCE IN ATTENTION [None]
  - DIZZINESS [None]
  - IRRITABILITY [None]
  - LETHARGY [None]
  - MALAISE [None]
  - MEMORY IMPAIRMENT [None]
  - NIGHT SWEATS [None]
  - PANIC ATTACK [None]
  - PARAESTHESIA [None]
  - POOR QUALITY SLEEP [None]
  - SOMNOLENCE [None]
  - VERTIGO [None]
  - WITHDRAWAL SYNDROME [None]
